FAERS Safety Report 14340649 (Version 2)
Quarter: 2018Q1

REPORT INFORMATION
  Report Type: Spontaneous
  Country: JP (occurrence: JP)
  Receive Date: 20180101
  Receipt Date: 20180317
  Transmission Date: 20180509
  Serious: Yes (Other)
  Sender: FDA-Public Use
  Company Number: JP-AMGEN-JPNSP2017193019

PATIENT
  Age: 7 Decade
  Sex: Male

DRUGS (2)
  1. VECTIBIX [Suspect]
     Active Substance: PANITUMUMAB
     Indication: COLON CANCER
     Dosage: UNK
     Route: 041
  2. VECTIBIX [Suspect]
     Active Substance: PANITUMUMAB
     Indication: COLON CANCER

REACTIONS (2)
  - Colon cancer [Unknown]
  - Condition aggravated [Unknown]
